FAERS Safety Report 6686777-3 (Version None)
Quarter: 2010Q2

REPORT INFORMATION
  Report Type: 
  Country: None (occurrence: None)
  Receive Date: 20100419
  Receipt Date: 20100407
  Transmission Date: 20101027
  Serious: Yes (Other)
  Sender: FDA-Public Use
  Company Number: JP-WYE-H14489610

PATIENT
  Age: 54 Year
  Sex: Male

DRUGS (1)
  1. GEMTUZUMAB OZOGAMICIN [Suspect]
     Indication: ACUTE MYELOID LEUKAEMIA
     Route: 042
     Dates: start: 20080101, end: 20080101

REACTIONS (3)
  - LIVER DISORDER [None]
  - NEUTROPENIA [None]
  - THROMBOCYTOPENIA [None]
